FAERS Safety Report 11392491 (Version 3)
Quarter: 2015Q4

REPORT INFORMATION
  Report Type: Report from Study
  Country: MX (occurrence: MX)
  Receive Date: 20150818
  Receipt Date: 20151231
  Transmission Date: 20160304
  Serious: Yes (Other)
  Sender: FDA-Public Use
  Company Number: PHHY2015MX091717

PATIENT
  Age: 62 Year
  Sex: Female

DRUGS (6)
  1. TRAYENTA DUO [Concomitant]
     Active Substance: LINAGLIPTIN\METFORMIN HYDROCHLORIDE
     Indication: DIABETES MELLITUS
     Dosage: 1 DF, BID (IN THE MORNING AND AT NIGHT)
     Route: 065
     Dates: start: 201505
  2. VYTORIN [Concomitant]
     Active Substance: EZETIMIBE\SIMVASTATIN
     Indication: BLOOD CHOLESTEROL ABNORMAL
     Dosage: 1 DF, QD
     Route: 065
     Dates: start: 2014
  3. KOMBIGLYZE XR [Concomitant]
     Active Substance: METFORMIN HYDROCHLORIDE\SAXAGLIPTIN HYDROCHLORIDE
     Indication: DIABETES MELLITUS
     Dosage: 1 DF, QD (IN THE MORNING)
     Route: 065
  4. DIOVAN [Suspect]
     Active Substance: VALSARTAN
     Dosage: 80 MG, QD (IN THE MORNING)
     Route: 065
     Dates: start: 201505
  5. DORIXINA FORTE [Concomitant]
     Indication: PRODUCT USED FOR UNKNOWN INDICATION
     Route: 065
  6. DIOVAN [Suspect]
     Active Substance: VALSARTAN
     Indication: HYPERTENSION
     Dosage: 160 MG, QD (IN THE MORNING)
     Route: 065
     Dates: start: 201403, end: 201505

REACTIONS (7)
  - Blindness [Recovered/Resolved]
  - Visual impairment [Recovering/Resolving]
  - Blood pressure decreased [Recovered/Resolved]
  - Retinal detachment [Recovering/Resolving]
  - Eye haemorrhage [Recovered/Resolved]
  - Cataract [Not Recovered/Not Resolved]
  - Blood pressure increased [Recovered/Resolved]

NARRATIVE: CASE EVENT DATE: 201412
